FAERS Safety Report 17931234 (Version 3)
Quarter: 2020Q3

REPORT INFORMATION
  Report Type: Spontaneous
  Country: BE (occurrence: BE)
  Receive Date: 20200623
  Receipt Date: 20200701
  Transmission Date: 20201103
  Serious: Yes (Other)
  Sender: FDA-Public Use
  Company Number: BE-IPSEN BIOPHARMACEUTICALS, INC.-2020-10955

PATIENT
  Sex: Female

DRUGS (1)
  1. AZZALURE [Suspect]
     Active Substance: BOTULINUM TOXIN TYPE A
     Indication: SKIN WRINKLING
     Dosage: DOSE NOT REPORTED
     Route: 065
     Dates: start: 20200619, end: 20200619

REACTIONS (2)
  - Visual impairment [Recovered/Resolved]
  - Vision blurred [Recovered/Resolved]

NARRATIVE: CASE EVENT DATE: 20200619
